FAERS Safety Report 8355007-9 (Version None)
Quarter: 2012Q2

REPORT INFORMATION
  Report Type: 
  Country: None (occurrence: None)
  Receive Date: 20120511
  Receipt Date: 20120509
  Transmission Date: 20120825
  Serious: No
  Sender: FDA-Public Use
  Company Number: CA-ABBOTT-12P-028-0934358-00

PATIENT
  Sex: Female

DRUGS (1)
  1. HUMIRA [Suspect]
     Indication: CROHN'S DISEASE
     Route: 058
     Dates: start: 20101012

REACTIONS (11)
  - CHEST DISCOMFORT [None]
  - LOWER RESPIRATORY TRACT INFECTION [None]
  - LYMPHOMA [None]
  - DEPRESSION [None]
  - APHTHOUS STOMATITIS [None]
  - STRESS [None]
  - MASS [None]
  - ANXIETY [None]
  - PYREXIA [None]
  - DYSPNOEA [None]
  - PAIN [None]
